FAERS Safety Report 9017626 (Version 1)
Quarter: 2013Q1

REPORT INFORMATION
  Report Type: Spontaneous
  Country: US (occurrence: US)
  Receive Date: 20130117
  Receipt Date: 20130117
  Transmission Date: 20140127
  Serious: Yes (Other)
  Sender: FDA-Public Use
  Company Number: US-PFIZER INC-2013020721

PATIENT
  Sex: 0

DRUGS (5)
  1. LIPITOR [Suspect]
     Dosage: 20 MG, 1X/DAY
  2. COMBIVENT [Concomitant]
     Dosage: 4 TIMES DAILY AS NEEDED
  3. WARFARIN [Concomitant]
     Dosage: UNK
  4. ASPIRIN [Concomitant]
     Dosage: UNK
  5. MUCINEX [Concomitant]
     Dosage: UNK

REACTIONS (3)
  - Cardiac valve disease [Unknown]
  - Asthma [Unknown]
  - Bronchitis [Unknown]
